FAERS Safety Report 11177078 (Version 1)
Quarter: 2015Q2

REPORT INFORMATION
  Report Type: Spontaneous
  Country: AU (occurrence: None)
  Receive Date: 20150608
  Receipt Date: 20150608
  Transmission Date: 20150821
  Serious: Yes (Other)
  Sender: FDA-Public Use
  Company Number: 2015-11459

PATIENT
  Age: 51 Year
  Sex: Male

DRUGS (1)
  1. EYLEA [Suspect]
     Active Substance: AFLIBERCEPT
     Indication: AGE-RELATED MACULAR DEGENERATION
     Dosage: 2 MG MILLIGRAM(S), EVERY 6-8WEEKS, INTRAOCULAR
     Route: 031
     Dates: start: 201408, end: 201412

REACTIONS (4)
  - Product use issue [None]
  - Off label use [None]
  - Drug dose omission [None]
  - Treatment noncompliance [None]

NARRATIVE: CASE EVENT DATE: 201408
